FAERS Safety Report 6753947-5 (Version None)
Quarter: 2010Q2

REPORT INFORMATION
  Report Type: 
  Country: None (occurrence: None)
  Receive Date: 20100603
  Receipt Date: 20100525
  Transmission Date: 20101027
  Serious: Yes (Death, Hospitalization)
  Sender: FDA-Public Use
  Company Number: A0853936A

PATIENT
  Age: 84 Year
  Sex: Female

DRUGS (11)
  1. COREG CR [Suspect]
     Indication: LEFT VENTRICULAR DYSFUNCTION
     Dosage: 80MG PER DAY
     Route: 048
     Dates: start: 20080101
  2. PREDNISONE [Concomitant]
  3. CEFTIN [Concomitant]
  4. FLECAINIDE ACETATE [Concomitant]
  5. FERROUS SULFATE TAB [Concomitant]
  6. PROZAC [Concomitant]
  7. COUMADIN [Concomitant]
  8. PROTONIX [Concomitant]
  9. VITAMIN D [Concomitant]
  10. XANAX [Concomitant]
  11. MULTIPLE MEDICATIONS [Concomitant]

REACTIONS (3)
  - ATRIAL FIBRILLATION [None]
  - HEART RATE IRREGULAR [None]
  - PNEUMONIA [None]
